FAERS Safety Report 12203561 (Version 1)
Quarter: 2016Q1

REPORT INFORMATION
  Report Type: Spontaneous
  Country: US (occurrence: None)
  Receive Date: 20160322
  Receipt Date: 20160322
  Transmission Date: 20160526
  Serious: Yes (Disabling)
  Sender: FDA-Public Use
  Company Number: None

PATIENT
  Age: 66 Year
  Sex: Female

DRUGS (4)
  1. VITAMIN C [Concomitant]
     Active Substance: ASCORBIC ACID
  2. BREO ELLIPTA [Suspect]
     Active Substance: FLUTICASONE FUROATE\VILANTEROL TRIFENATATE
     Indication: PNEUMONIA
     Dosage: 1 X DAY ONCE DAILY INHALATION
     Route: 055
     Dates: start: 20160201, end: 20160206
  3. VITAMIN D [Concomitant]
     Active Substance: CHOLECALCIFEROL
  4. CALTRATE [Concomitant]
     Active Substance: CALCIUM CARBONATE

REACTIONS (1)
  - Candida infection [None]

NARRATIVE: CASE EVENT DATE: 20160213
